FAERS Safety Report 7361933-X (Version None)
Quarter: 2011Q1

REPORT INFORMATION
  Report Type: 
  Country: None (occurrence: None)
  Receive Date: 20110315
  Receipt Date: 20110315
  Transmission Date: 20110831
  Serious: Yes (Hospitalization, Disabling, Other)
  Sender: FDA-Public Use
  Company Number: None

PATIENT
  Age: 32 Year
  Sex: Female
  Weight: 70.3075 kg

DRUGS (1)
  1. MIRENA [Suspect]
     Indication: CONTRACEPTION
     Dosage: DAILY INTRA-UTERINE
     Route: 015
     Dates: start: 20091015, end: 20110311

REACTIONS (9)
  - DIZZINESS [None]
  - DYSPEPSIA [None]
  - PELVIC INFLAMMATORY DISEASE [None]
  - CHEST PAIN [None]
  - OVARIAN CYST [None]
  - HYPOAESTHESIA [None]
  - PERICARDITIS [None]
  - NECK PAIN [None]
  - HYPERTENSION [None]
